FAERS Safety Report 24824987 (Version 1)
Quarter: 2025Q1

REPORT INFORMATION
  Report Type: Spontaneous
  Country: RO (occurrence: RO)
  Receive Date: 20250109
  Receipt Date: 20250109
  Transmission Date: 20250409
  Serious: Yes (Death, Hospitalization)
  Sender: MYLAN
  Company Number: RO-MYLANLABS-2025M1001570

PATIENT
  Age: 27 Year
  Sex: Female

DRUGS (11)
  1. DOXORUBICIN [Suspect]
     Active Substance: DOXORUBICIN
     Indication: Clear cell sarcoma of soft tissue
     Route: 065
  2. TIGECYCLINE [Suspect]
     Active Substance: TIGECYCLINE
     Indication: Acinetobacter infection
     Route: 065
  3. TIGECYCLINE [Suspect]
     Active Substance: TIGECYCLINE
     Indication: Enterococcal infection
  4. IFOSFAMIDE [Suspect]
     Active Substance: IFOSFAMIDE
     Indication: Clear cell sarcoma of soft tissue
     Route: 065
  5. MESNA [Suspect]
     Active Substance: MESNA
     Indication: Clear cell sarcoma of soft tissue
     Route: 065
  6. GOSERELIN [Suspect]
     Active Substance: GOSERELIN
     Indication: Clear cell sarcoma of soft tissue
     Route: 065
  7. PAZOPANIB [Suspect]
     Active Substance: PAZOPANIB
     Indication: Clear cell sarcoma of soft tissue
     Dosage: 800 MILLIGRAM, QD
     Route: 065
  8. COLISTIN [Suspect]
     Active Substance: COLISTIN
     Indication: Acinetobacter infection
     Route: 065
  9. COLISTIN [Suspect]
     Active Substance: COLISTIN
     Indication: Enterococcal infection
  10. FENTANYL [Concomitant]
     Active Substance: FENTANYL
     Indication: Analgesic therapy
     Route: 065
  11. MORPHINE [Concomitant]
     Active Substance: MORPHINE
     Indication: Analgesic therapy
     Route: 065

REACTIONS (4)
  - Coma [Fatal]
  - Posterior reversible encephalopathy syndrome [Fatal]
  - Drug ineffective [Fatal]
  - Disease progression [Fatal]
